FAERS Safety Report 6611489-1 (Version None)
Quarter: 2010Q1

REPORT INFORMATION
  Report Type: 
  Country: None (occurrence: None)
  Receive Date: 20100301
  Receipt Date: 20100301
  Transmission Date: 20100710
  Serious: Yes (Hospitalization)
  Sender: FDA-Public Use
  Company Number: None

PATIENT
  Sex: Male
  Weight: 118.5 kg

DRUGS (2)
  1. BEXAROTENE 75MG CAPSULES EASAI, INC [Suspect]
     Indication: MYELODYSPLASTIC SYNDROME
     Dosage: 750 MG DAILY PO
     Route: 048
     Dates: start: 20100128, end: 20100224
  2. SARGRAMOSTIN 500MCG PER VIAL BAYER HEALTHCARE PHARMACEUTICALS INC. [Suspect]
     Dosage: 318 MCG DAILY SQ
     Route: 058

REACTIONS (1)
  - NEPHROLITHIASIS [None]
